FAERS Safety Report 25121343 (Version 1)
Quarter: 2025Q1

REPORT INFORMATION
  Report Type: Spontaneous
  Country: US (occurrence: US)
  Receive Date: 20250326
  Receipt Date: 20250326
  Transmission Date: 20250408
  Serious: Yes (Life-Threatening, Hospitalization)
  Sender: STRIDES
  Company Number: US-STRIDES ARCOLAB LIMITED-2023SP013774

PATIENT
  Age: 47 Year
  Sex: Female

DRUGS (6)
  1. DEXAMETHASONE [Suspect]
     Active Substance: DEXAMETHASONE
     Indication: Anaphylactic reaction
     Route: 065
  2. EPINEPHRINE [Suspect]
     Active Substance: EPINEPHRINE
     Indication: Anaphylactic reaction
     Route: 030
  3. EPINEPHRINE [Suspect]
     Active Substance: EPINEPHRINE
     Route: 030
  4. BENADRYL [Suspect]
     Active Substance: DIPHENHYDRAMINE HYDROCHLORIDE
     Indication: Anaphylactic reaction
     Route: 042
  5. OXYGEN [Suspect]
     Active Substance: OXYGEN
     Indication: Anaphylactic reaction
     Route: 065
  6. SULFUR HEXAFLUORIDE [Concomitant]
     Active Substance: SULFUR HEXAFLUORIDE
     Indication: Product used for unknown indication
     Route: 042

REACTIONS (1)
  - Drug ineffective [Unknown]
